FAERS Safety Report 4285406-6 (Version None)
Quarter: 2004Q1

REPORT INFORMATION
  Report Type: 
  Country: None (occurrence: None)
  Receive Date: 20040203
  Receipt Date: 20040203
  Transmission Date: 20041129
  Serious: Yes (Hospitalization)
  Sender: FDA-Public Use
  Company Number: None

PATIENT
  Age: 52 Year
  Sex: Female
  Weight: 54.4316 kg

DRUGS (4)
  1. CYCLOBENZAPRINE HCL [Suspect]
     Indication: MUSCLE STRAIN
     Dosage: 1 TAB 3 X DAILY BY MOUTH
     Route: 048
     Dates: start: 20030804, end: 20030809
  2. CELEBREX [Concomitant]
  3. CALCIUM [Concomitant]
  4. FOSAMAX [Concomitant]

REACTIONS (1)
  - CONVULSION [None]
